FAERS Safety Report 8282391 (Version 3)
Quarter: 2012Q4

REPORT INFORMATION
  Report Type: 
  Country: CA (occurrence: CA)
  Receive Date: 20111209
  Receipt Date: 20121220
  Transmission Date: 20130627
  Serious: Yes (Death, Hospitalization)
  Sender: FDA-Public Use
  Company Number: CA-GLAXOSMITHKLINE-A0929223A

PATIENT
  Age: 38 Year
  Sex: Female

DRUGS (6)
  1. TYKERB [Suspect]
     Indication: BREAST CANCER METASTATIC
     Dosage: 1250MG Per day
     Route: 048
     Dates: start: 20110511
  2. XELODA [Suspect]
     Indication: BREAST CANCER METASTATIC
     Route: 065
  3. AREDIA [Concomitant]
  4. DILANTIN [Concomitant]
  5. DECADRON [Concomitant]
  6. RESTORIL [Concomitant]

REACTIONS (8)
  - Palmar-plantar erythrodysaesthesia syndrome [Unknown]
  - Fatigue [Unknown]
  - Asthenia [Unknown]
  - No therapeutic response [Unknown]
  - Convulsion [Not Recovered/Not Resolved]
  - Metastases to central nervous system [Not Recovered/Not Resolved]
  - Anticonvulsant drug level below therapeutic [Not Recovered/Not Resolved]
  - Death [Fatal]
